FAERS Safety Report 13495268 (Version 1)
Quarter: 2017Q2

REPORT INFORMATION
  Report Type: Spontaneous
  Country: US (occurrence: US)
  Receive Date: 20170427
  Receipt Date: 20170427
  Transmission Date: 20170830
  Serious: Yes (Hospitalization)
  Sender: FDA-Public Use
  Company Number: None

PATIENT
  Age: 60 Year
  Sex: Female

DRUGS (1)
  1. LUCENTIS [Suspect]
     Active Substance: RANIBIZUMAB
     Indication: DIABETIC RETINAL OEDEMA
     Dosage: OTHER FREQUENCY:ONCE A MONTH;OTHER ROUTE:INTRAVITREAL?
     Dates: start: 20160519

REACTIONS (2)
  - Cardiac failure congestive [None]
  - Fall [None]

NARRATIVE: CASE EVENT DATE: 20170409
